FAERS Safety Report 17822060 (Version 1)
Quarter: 2020Q2

REPORT INFORMATION
  Report Type: Spontaneous
  Country: ES (occurrence: ES)
  Receive Date: 20200526
  Receipt Date: 20200526
  Transmission Date: 20200714
  Serious: Yes (Hospitalization)
  Sender: FDA-Public Use
  Company Number: NVSC2020ES136924

PATIENT
  Age: 79 Year
  Sex: Female

DRUGS (10)
  1. LANACORDIN PEDIATRICO [Concomitant]
     Indication: ATRIAL FIBRILLATION
     Dosage: UNK (3 AL DIA)
     Route: 065
     Dates: start: 20170222, end: 20200226
  2. BISOPROLOL [Concomitant]
     Active Substance: BISOPROLOL
     Indication: PRODUCT USED FOR UNKNOWN INDICATION
     Dosage: 5 MG, Q12H (COMPRIMIDO)
     Route: 048
     Dates: start: 20171107, end: 20200226
  3. ENALAPRIL MALEATE,HYDROCHLOROTHIAZIDE [Interacting]
     Active Substance: ENALAPRIL MALEATE\HYDROCHLOROTHIAZIDE
     Indication: HYPERTENSION
     Dosage: 1 DF, QD (1 DIA)
     Route: 048
     Dates: start: 20130304, end: 20200227
  4. METAMIZOLE [Concomitant]
     Active Substance: METAMIZOLE
     Indication: BACK PAIN
     Dosage: 575 MG, Q6H
     Route: 048
     Dates: start: 20200219
  5. DEXKETOPROFEN TROMETAMOL [Interacting]
     Active Substance: DEXKETOPROFEN TROMETAMOL
     Indication: BACK PAIN
     Dosage: 25 MG, Q12H (25MG CADA 12H)
     Route: 048
     Dates: start: 20200216, end: 20200219
  6. SINTROM [Concomitant]
     Active Substance: ACENOCOUMAROL
     Indication: ATRIAL FIBRILLATION
     Dosage: 6 MG, QW (COMPRIMIDOS)
     Route: 048
     Dates: start: 20180725
  7. ZALDIAR [Concomitant]
     Active Substance: ACETAMINOPHEN\TRAMADOL HYDROCHLORIDE
     Indication: BACK PAIN
     Dosage: 1 DF, Q8H
     Route: 048
     Dates: start: 20200219, end: 20200229
  8. DICLOFENACO RETARD [Interacting]
     Active Substance: DICLOFENAC SODIUM
     Indication: BACK PAIN
     Dosage: 75 MG, Q12H (CONCENTRATION 75)
     Route: 048
     Dates: start: 20200219, end: 20200225
  9. FUROSEMIDE 40 MG [Suspect]
     Active Substance: FUROSEMIDE
     Indication: PRODUCT USED FOR UNKNOWN INDICATION
     Dosage: 40 MG, QD (30 COMPRIMIDOS)
     Route: 048
     Dates: start: 20170105
  10. IBUPROFENO [Concomitant]
     Active Substance: IBUPROFEN
     Indication: BACK PAIN
     Dosage: 600 MG, Q12H (COMPRIMIDO)
     Route: 048
     Dates: start: 20200214, end: 20200216

REACTIONS (2)
  - Acute kidney injury [Recovering/Resolving]
  - Toxicity to various agents [Recovering/Resolving]

NARRATIVE: CASE EVENT DATE: 20200226
